FAERS Safety Report 9005953 (Version 2)
Quarter: 2013Q1

REPORT INFORMATION
  Report Type: Spontaneous
  Country: US (occurrence: US)
  Receive Date: 20130109
  Receipt Date: 20130114
  Transmission Date: 20140127
  Serious: Yes (Death)
  Sender: FDA-Public Use
  Company Number: US-PFIZER INC-2013006677

PATIENT
  Age: 53 Year
  Sex: Male

DRUGS (3)
  1. LIDOCAINE HCL [Suspect]
     Dosage: UNK
     Route: 051
  2. BENZODIAZEPINE DERIVATIVES [Suspect]
     Dosage: UNK
     Route: 051
  3. CARISOPRODOL [Suspect]
     Dosage: UNK
     Route: 051

REACTIONS (3)
  - Completed suicide [Fatal]
  - Cardiac arrest [Fatal]
  - Respiratory arrest [Fatal]
